FAERS Safety Report 4596531-4 (Version None)
Quarter: 2005Q1

REPORT INFORMATION
  Report Type: 
  Country: None (occurrence: None)
  Receive Date: 20050228
  Receipt Date: 20040712
  Transmission Date: 20050727
  Serious: Yes (Hospitalization)
  Sender: FDA-Public Use
  Company Number: 8453

PATIENT
  Age: 38 Year
  Sex: Female

DRUGS (9)
  1. METHOTREXATE [Suspect]
     Indication: RHEUMATOID ARTHRITIS
     Dosage: 25 MG WEEKLY SC
     Route: 058
     Dates: start: 20030101, end: 20030813
  2. IMURAN [Suspect]
     Dosage: 50 MG BID PO
     Route: 048
     Dates: start: 20030711, end: 20030813
  3. ENBREL [Suspect]
     Indication: RHEUMATOID ARTHRITIS
     Dosage: 25 MG 2/WK SC
     Route: 058
     Dates: start: 20030127, end: 20030813
  4. PLAQUENIL [Concomitant]
  5. CENTRUM [Concomitant]
  6. DEPO-PROVERA [Concomitant]
  7. AUGMENTIN '125' [Concomitant]
  8. ARAVA [Concomitant]
  9. OXYCONTIN [Concomitant]

REACTIONS (7)
  - GRANULOCYTOPENIA [None]
  - JOINT SWELLING [None]
  - LEUKOPENIA [None]
  - PHARYNGEAL ERYTHEMA [None]
  - PHARYNGOLARYNGEAL PAIN [None]
  - PYREXIA [None]
  - RHEUMATOID ARTHRITIS [None]
